FAERS Safety Report 6358747-6 (Version None)
Quarter: 2009Q3

REPORT INFORMATION
  Report Type: 
  Country: None (occurrence: None)
  Receive Date: 20090916
  Receipt Date: 20090817
  Transmission Date: 20100115
  Serious: No
  Sender: FDA-Public Use
  Company Number: US-ABBOTT-09P-163-0592780-00

PATIENT
  Sex: Female
  Weight: 62.198 kg

DRUGS (7)
  1. TRILIPIX [Suspect]
     Indication: BLOOD CHOLESTEROL INCREASED
     Dates: start: 20090101, end: 20090301
  2. TRILIPIX [Suspect]
     Indication: BLOOD TRIGLYCERIDES INCREASED
  3. LIPITOR [Concomitant]
     Indication: BLOOD CHOLESTEROL INCREASED
  4. ATENOLOL [Concomitant]
     Indication: HYPERTENSION
  5. ACETAB [Concomitant]
     Indication: HYPERTENSION
  6. SYNTHROID [Concomitant]
     Indication: HYPOTHYROIDISM
  7. LISINOPRIL [Concomitant]
     Indication: HYPERTENSION

REACTIONS (1)
  - ABASIA [None]
